FAERS Safety Report 8376158-9 (Version None)
Quarter: 2012Q2

REPORT INFORMATION
  Report Type: 
  Country: None (occurrence: None)
  Receive Date: 20120522
  Receipt Date: 20120521
  Transmission Date: 20120825
  Serious: Yes (Other)
  Sender: FDA-Public Use
  Company Number: PHFR2012IE001412

PATIENT
  Sex: Male

DRUGS (2)
  1. CLOZARIL [Suspect]
     Indication: SCHIZOPHRENIA
     Dosage: 100 MG, DAILY
     Route: 048
     Dates: start: 20120213
  2. CLOZARIL [Suspect]
     Dosage: 275 MG, (100 MG AT AM AND 175 MG AT PM)
     Route: 048

REACTIONS (7)
  - LETHARGY [None]
  - HEART RATE INCREASED [None]
  - COUGH [None]
  - HYPERHIDROSIS [None]
  - FATIGUE [None]
  - BODY TEMPERATURE FLUCTUATION [None]
  - RESPIRATORY TRACT INFECTION [None]
